FAERS Safety Report 21868588 (Version 6)
Quarter: 2023Q2

REPORT INFORMATION
  Report Type: Report from Study
  Country: IL (occurrence: IL)
  Receive Date: 20230117
  Receipt Date: 20230525
  Transmission Date: 20230721
  Serious: Yes (Hospitalization, Other)
  Sender: FDA-Public Use
  Company Number: IL-ABBVIE-4252661

PATIENT
  Age: 78 Year
  Sex: Female

DRUGS (3)
  1. CARBIDOPA\LEVODOPA [Suspect]
     Active Substance: CARBIDOPA\LEVODOPA
     Indication: Parkinson^s disease
     Dosage: THERAPY DURATION (HRS)  REMAINS AT 16?CONTINUOUS DOSAGE (ML/H)  4.3, AFTERNOON DOSAGE (ML)  5.0, ...
     Route: 050
     Dates: start: 20191110
  2. CARBIDOPA\LEVODOPA [Suspect]
     Active Substance: CARBIDOPA\LEVODOPA
     Dosage: MORNING DOSAGE(ML)  7.0, CONTINUOUS DOSAGE (ML/H)  4.3, EXTRA DOSAGE (ML)  3.0.
     Route: 050
  3. SINEMET [Suspect]
     Active Substance: CARBIDOPA\LEVODOPA
     Indication: Product used for unknown indication
     Dosage: BEFORE BED
     Route: 065

REACTIONS (16)
  - Computerised tomogram abnormal [Unknown]
  - Intentional product misuse [Unknown]
  - Lung neoplasm [Recovering/Resolving]
  - COVID-19 [Recovering/Resolving]
  - Fall [Unknown]
  - Dyskinesia [Recovering/Resolving]
  - Cough [Unknown]
  - On and off phenomenon [Recovering/Resolving]
  - Hand fracture [Recovering/Resolving]
  - Constipation [Recovering/Resolving]
  - Dysphagia [Unknown]
  - Nocturia [Unknown]
  - Inappropriate schedule of product administration [Unknown]
  - X-ray abnormal [Unknown]
  - Infrequent bowel movements [Recovering/Resolving]
  - Dysstasia [Unknown]

NARRATIVE: CASE EVENT DATE: 20221228
